FAERS Safety Report 7427036 (Version 7)
Quarter: 2013Q1

REPORT INFORMATION
  Report Type: Report from Study
  Country: BE (occurrence: BE)
  Receive Date: 20100621
  Receipt Date: 20130123
  Transmission Date: 20140127
  Serious: Yes (Hospitalization)
  Sender: FDA-Public Use
  Company Number: BE-BRISTOL-MYERS SQUIBB COMPANY-15155088

PATIENT
  Age: 67 Year
  Sex: Male
  Weight: 80 kg

DRUGS (4)
  1. CETUXIMAB [Suspect]
     Indication: NON-SMALL CELL LUNG CANCER
     Dosage: RECENT INF ON: 01JUN2010;STRENGTH: 5MG/ML.INTERRUPTED ON 08JUN2010
     Route: 042
     Dates: start: 20100525
  2. CISPLATIN FOR INJ [Suspect]
     Indication: NON-SMALL CELL LUNG CANCER
     Dosage: DAY 1
     Route: 042
     Dates: start: 20100526
  3. CILENGITIDE [Suspect]
     Indication: NON-SMALL CELL LUNG CANCER
     Dosage: RECENT DOSE:01JUN2010; ?REDUCED TO 1500MG, 428.5714MG UNK-ONG
     Route: 042
     Dates: start: 20100525
  4. GEMCITABINE [Suspect]
     Indication: NON-SMALL CELL LUNG CANCER
     Dosage: RECENT DOSE: 01JUN2010;DAY 1,8 OF 3 WEEK CYCLE
     Route: 042
     Dates: start: 20100525

REACTIONS (2)
  - Epistaxis [Recovered/Resolved]
  - Thrombocytopenia [Recovered/Resolved]
